FAERS Safety Report 9520986 (Version 1)
Quarter: 2013Q3

REPORT INFORMATION
  Report Type: Spontaneous
  Country: US (occurrence: US)
  Receive Date: 20130913
  Receipt Date: 20130913
  Transmission Date: 20140515
  Serious: No
  Sender: FDA-Public Use
  Company Number: US-PFIZER INC-2013259617

PATIENT
  Age: 66 Year
  Sex: Female
  Weight: 66.67 kg

DRUGS (8)
  1. XELJANZ [Suspect]
     Indication: RHEUMATOID ARTHRITIS
     Dosage: 5 MG, 2X/DAY
     Route: 048
  2. TOPAMAX [Concomitant]
     Dosage: 25 MG, UNK
     Route: 048
  3. PREMARIN [Concomitant]
     Dosage: 0.3 MG, UNK
     Route: 048
  4. NEXIUM [Concomitant]
     Dosage: 20 MG, UNK
     Route: 048
  5. VALTREX [Concomitant]
     Dosage: 500 MG, UNK
     Route: 048
  6. SYNTHROID [Concomitant]
     Dosage: 25 UG, UNK
     Route: 048
  7. BACLOFEN [Concomitant]
     Dosage: 10 MG, UNK
     Route: 048
  8. AMRIX [Concomitant]
     Dosage: 15 MG, UNK
     Route: 048

REACTIONS (2)
  - Headache [Unknown]
  - Fatigue [Unknown]
